FAERS Safety Report 9309389 (Version 1)
Quarter: 2013Q2

REPORT INFORMATION
  Report Type: Spontaneous
  Country: US (occurrence: US)
  Receive Date: 20130525
  Receipt Date: 20130525
  Transmission Date: 20140414
  Serious: No
  Sender: FDA-Public Use
  Company Number: US-BRISTOL-MYERS SQUIBB COMPANY-18583716

PATIENT
  Age: 51 Year
  Sex: Female
  Weight: 110.66 kg

DRUGS (5)
  1. BYDUREON 2MG VIAL + SYRINGE [Suspect]
     Indication: TYPE 2 DIABETES MELLITUS
     Route: 058
     Dates: start: 201210
  2. GLIMEPIRIDE [Concomitant]
     Indication: TYPE 2 DIABETES MELLITUS
     Route: 048
  3. JANUMET [Concomitant]
     Indication: TYPE 2 DIABETES MELLITUS
     Route: 048
  4. GLYBURIDE [Concomitant]
     Route: 048
  5. LISINOPRIL [Concomitant]
     Indication: BLOOD CHOLESTEROL

REACTIONS (4)
  - Blood glucose increased [Not Recovered/Not Resolved]
  - Viral infection [Unknown]
  - Stress [Unknown]
  - Weight decreased [Not Recovered/Not Resolved]
